FAERS Safety Report 20505354 (Version 4)
Quarter: 2023Q2

REPORT INFORMATION
  Report Type: Report from Study
  Country: KR (occurrence: KR)
  Receive Date: 20220223
  Receipt Date: 20230521
  Transmission Date: 20230721
  Serious: Yes (Other)
  Sender: FDA-Public Use
  Company Number: KR-ABBVIE-22K-090-4288193-00

PATIENT
  Sex: Male
  Weight: 72 kg

DRUGS (8)
  1. RINVOQ [Suspect]
     Active Substance: UPADACITINIB
     Indication: Rheumatoid arthritis
     Dosage: FORM STRENGTH: 15 MILLIGRAM
     Route: 048
     Dates: start: 20211229, end: 20220221
  2. RINVOQ [Suspect]
     Active Substance: UPADACITINIB
     Indication: Rheumatoid arthritis
     Dosage: FORM STRENGTH: 15 MILLIGRAM
     Route: 048
     Dates: start: 20220308
  3. Methotrexate 15 Milligram [Concomitant]
     Indication: Rheumatoid arthritis
     Dosage: METHOTREXATE (RHEUMATREX. FOLEX)
     Dates: start: 20100713, end: 20220221
  4. PREDNISOLONE 2.5 Milligram [Concomitant]
     Indication: Rheumatoid arthritis
     Dates: start: 20100713, end: 20220124
  5. FOLIC ACID SINIL [Concomitant]
     Indication: Vitamin supplementation
     Route: 048
     Dates: start: 20100713, end: 20220502
  6. DICAMAX 1000 [Concomitant]
     Indication: Osteoporosis prophylaxis
     Route: 048
     Dates: start: 20130429, end: 20220221
  7. Steroids-Methylprednisolon [Concomitant]
     Indication: Rheumatoid arthritis
     Dates: start: 20220503
  8. AMOSARTAN [Concomitant]
     Indication: Hypertension
     Dosage: 5/100MG
     Route: 048
     Dates: start: 2015

REACTIONS (1)
  - Hepatotoxicity [Recovered/Resolved]

NARRATIVE: CASE EVENT DATE: 20220222
